FAERS Safety Report 17769857 (Version 7)
Quarter: 2021Q3

REPORT INFORMATION
  Report Type: Spontaneous
  Country: US (occurrence: US)
  Receive Date: 20200512
  Receipt Date: 20210806
  Transmission Date: 20211014
  Serious: Yes (Other)
  Sender: FDA-Public Use
  Company Number: US-PFIZER INC-2020188852

PATIENT
  Age: 69 Year
  Sex: Female

DRUGS (5)
  1. IBRANCE [Suspect]
     Active Substance: PALBOCICLIB
     Dosage: 100 MG
     Dates: start: 20200512
  2. IBRANCE [Suspect]
     Active Substance: PALBOCICLIB
     Dosage: 75 MG
     Dates: start: 20210101
  3. IBRANCE [Suspect]
     Active Substance: PALBOCICLIB
     Dosage: 75 MG
     Dates: start: 20191119
  4. IBRANCE [Suspect]
     Active Substance: PALBOCICLIB
     Dosage: 100 MG
     Dates: start: 20201102
  5. IBRANCE [Suspect]
     Active Substance: PALBOCICLIB
     Dosage: 100 MG
     Dates: start: 20191029

REACTIONS (12)
  - Rash [Unknown]
  - Blood glucose fluctuation [Unknown]
  - Dermatitis contact [Unknown]
  - Pigmentation disorder [Unknown]
  - Neutropenia [Unknown]
  - White blood cell count decreased [Unknown]
  - Rash pruritic [Unknown]
  - Sinusitis [Unknown]
  - Urticaria [Unknown]
  - Abdominal distension [Unknown]
  - Migraine [Unknown]
  - Infection [Unknown]
